FAERS Safety Report 10244936 (Version 1)
Quarter: 2014Q2

REPORT INFORMATION
  Report Type: Spontaneous
  Country: US (occurrence: None)
  Receive Date: 20140616
  Receipt Date: 20140616
  Transmission Date: 20141212
  Serious: Yes (Other)
  Sender: FDA-Public Use
  Company Number: None

PATIENT
  Age: 52 Year
  Sex: Male
  Weight: 79.38 kg

DRUGS (3)
  1. COPAXONE [Suspect]
     Indication: MULTIPLE SCLEROSIS
     Dosage: ONCE DAILY DAILY INJECTION ON SKIN
  2. NIACIN [Concomitant]
  3. VITAMIN D3 [Suspect]

REACTIONS (6)
  - Injection site discomfort [None]
  - Injection site pain [None]
  - Injection site bruising [None]
  - Injection site mass [None]
  - Psychiatric symptom [None]
  - Eye disorder [None]
